FAERS Safety Report 13285266 (Version 1)
Quarter: 2017Q1

REPORT INFORMATION
  Report Type: Spontaneous
  Country: US (occurrence: US)
  Receive Date: 20170301
  Receipt Date: 20170301
  Transmission Date: 20170428
  Serious: Yes (Other)
  Sender: FDA-Public Use
  Company Number: None

PATIENT
  Age: 31 Year
  Sex: Female
  Weight: 55 kg

DRUGS (8)
  1. DEPO-PROVERA [Suspect]
     Active Substance: MEDROXYPROGESTERONE ACETATE
     Indication: CONTRACEPTION
     Dosage: QUANTITY:1 INJECTION(S);OTHER FREQUENCY:3 MONTHLY;?
     Route: 058
     Dates: start: 20161108, end: 20170131
  2. OXYBUTYNIN [Concomitant]
     Active Substance: OXYBUTYNIN
  3. OMEPRAZOLE. [Concomitant]
     Active Substance: OMEPRAZOLE
  4. LORATADINE. [Concomitant]
     Active Substance: LORATADINE
  5. DOMPERIDONE [Concomitant]
     Active Substance: DOMPERIDONE
  6. RANITIDINE. [Concomitant]
     Active Substance: RANITIDINE
  7. MAGNESIUM [Concomitant]
     Active Substance: MAGNESIUM
  8. PROBIOTICS [Concomitant]
     Active Substance: PROBIOTICS NOS

REACTIONS (8)
  - Anorgasmia [None]
  - Dyspareunia [None]
  - Fatigue [None]
  - Coordination abnormal [None]
  - Dyspnoea [None]
  - Loss of libido [None]
  - Arthralgia [None]
  - Tachycardia [None]

NARRATIVE: CASE EVENT DATE: 20161208
